FAERS Safety Report 15682139 (Version 2)
Quarter: 2018Q4

REPORT INFORMATION
  Report Type: Spontaneous
  Country: DE (occurrence: DE)
  Receive Date: 20181203
  Receipt Date: 20181205
  Transmission Date: 20190205
  Serious: Yes (Life-Threatening, Hospitalization)
  Sender: FDA-Public Use
  Company Number: DE-PFIZER INC-2018460402

PATIENT
  Sex: Female
  Weight: 2.12 kg

DRUGS (2)
  1. MINPROG [Suspect]
     Active Substance: ALPROSTADIL
     Indication: DUCTUS ARTERIOSUS STENOSIS FOETAL
     Dosage: 5 NG / KG / MIN
  2. MINPROG [Suspect]
     Active Substance: ALPROSTADIL
     Dosage: UNK

REACTIONS (1)
  - Drug ineffective [Recovered/Resolved]

NARRATIVE: CASE EVENT DATE: 20180920
